FAERS Safety Report 24737463 (Version 1)
Quarter: 2024Q4

REPORT INFORMATION
  Report Type: Spontaneous
  Country: US (occurrence: None)
  Receive Date: 20241213
  Receipt Date: 20241213
  Transmission Date: 20250114
  Serious: Yes (Other)
  Sender: Public
  Company Number: None

PATIENT
  Sex: Female

DRUGS (8)
  1. SPRAVATO [Suspect]
     Active Substance: ESKETAMINE
     Indication: Product used for unknown indication
     Dosage: FREQ: ADMINISTER 56 MG INTRANASALLY TWICE WEEKLY
     Route: 045
  2. KLONOPIN [Concomitant]
     Active Substance: CLONAZEPAM
  3. PEPCID [Concomitant]
     Active Substance: FAMOTIDINE
  4. PROBIOTICS NOS [Suspect]
     Active Substance: PROBIOTICS NOS
  5. REMERON [Concomitant]
     Active Substance: MIRTAZAPINE
  6. SIMETHICONE (DIMETHICONE) [Concomitant]
     Active Substance: DIMETHICONE
  7. SPRAVTO [Concomitant]
  8. ZYPREXA [Concomitant]
     Active Substance: OLANZAPINE

REACTIONS (4)
  - Nausea [None]
  - Crying [None]
  - Depression [None]
  - Suicidal ideation [None]
